FAERS Safety Report 5502501-1 (Version None)
Quarter: 2007Q4

REPORT INFORMATION
  Report Type: 
  Country: None (occurrence: None)
  Receive Date: 20071030
  Receipt Date: 20071017
  Transmission Date: 20080405
  Serious: Yes (Other)
  Sender: FDA-Public Use
  Company Number: GB-PFIZER INC-2007090328

PATIENT
  Age: 75 Year
  Sex: Female

DRUGS (3)
  1. LATANOPROST [Suspect]
     Indication: GLAUCOMA
     Route: 047
  2. BISOPROLOL FUMARATE [Concomitant]
  3. WARFARIN SODIUM [Concomitant]

REACTIONS (1)
  - IRIS CYST [None]
